FAERS Safety Report 9203995 (Version 1)
Quarter: 2013Q1

REPORT INFORMATION
  Report Type: Spontaneous
  Country: US (occurrence: None)
  Receive Date: 20120709
  Receipt Date: 20120709
  Transmission Date: 20140127
  Serious: Yes (Other)
  Sender: FDA-Public Use
  Company Number: PHHY2011US53581

PATIENT
  Age: 60 Year
  Sex: Male

DRUGS (5)
  1. GLEEVEC (IMATINIB) UNKNOWN [Suspect]
     Route: 048
     Dates: start: 20110602
  2. HYZAAR (HYDROCHLOROTHIAZIDE, LOSARTAN POTASSIUM) [Concomitant]
  3. LABETALOL (LABETALOL) [Concomitant]
  4. NIFEDIPINE (NIFEDIPINE) [Concomitant]
  5. ASPIRIN (ACETYLSALICYLIC ACID) [Concomitant]

REACTIONS (2)
  - Neutropenia [None]
  - Anaemia [None]
